FAERS Safety Report 10172451 (Version 2)
Quarter: 2015Q2

REPORT INFORMATION
  Report Type: Spontaneous
  Country: US (occurrence: US)
  Receive Date: 20140515
  Receipt Date: 20150506
  Transmission Date: 20150821
  Serious: Yes (Hospitalization)
  Sender: FDA-Public Use
  Company Number: US-BAYER-2014-070980

PATIENT
  Age: 24 Year
  Sex: Female
  Weight: 66 kg

DRUGS (1)
  1. MIRENA [Suspect]
     Active Substance: LEVONORGESTREL
     Indication: CONTRACEPTION
     Dosage: 20 MCG/24HR, CONT
     Route: 015
     Dates: start: 201103, end: 20110606

REACTIONS (9)
  - Injury [None]
  - Medical device pain [None]
  - Abdominal pain lower [None]
  - Uterine perforation [None]
  - Scar [None]
  - Pain [None]
  - Dysmenorrhoea [None]
  - Discomfort [None]
  - Anxiety [None]

NARRATIVE: CASE EVENT DATE: 201106
